FAERS Safety Report 14204098 (Version 1)
Quarter: 2017Q4

REPORT INFORMATION
  Report Type: Spontaneous
  Country: US (occurrence: US)
  Receive Date: 20171117
  Receipt Date: 20171117
  Transmission Date: 20180321
  Serious: Yes (Other)
  Sender: FDA-Public Use
  Company Number: None

PATIENT
  Age: 52 Year
  Sex: Male
  Weight: 94.5 kg

DRUGS (1)
  1. PREPOPIK [Suspect]
     Active Substance: ANHYDROUS CITRIC ACID\MAGNESIUM OXIDE\SODIUM PICOSULFATE
     Indication: COLONOSCOPY
     Route: 048

REACTIONS (6)
  - Vomiting [None]
  - Abdominal distension [None]
  - Hyperhidrosis [None]
  - Malaise [None]
  - Retching [None]
  - Nausea [None]

NARRATIVE: CASE EVENT DATE: 20170925
